FAERS Safety Report 4474539-7 (Version None)
Quarter: 2004Q4

REPORT INFORMATION
  Report Type: 
  Country: None (occurrence: None)
  Receive Date: 20041008
  Receipt Date: 20040924
  Transmission Date: 20050328
  Serious: Yes (Death)
  Sender: FDA-Public Use
  Company Number: K200401475

PATIENT
  Age: 21 Year
  Sex: Female

DRUGS (2)
  1. SKELAXIN [Suspect]
  2. LORCET (PARACETAMOL, HYDROCODONE BITARTRATE) PILL (EXCEPT TABLETS) [Suspect]

REACTIONS (6)
  - DRUG LEVEL BELOW THERAPEUTIC [None]
  - DRUG TOXICITY [None]
  - MULTIPLE DRUG OVERDOSE [None]
  - PULMONARY THROMBOSIS [None]
  - PYELONEPHRITIS [None]
  - RIB FRACTURE [None]
